FAERS Safety Report 6616262-6 (Version None)
Quarter: 2010Q1

REPORT INFORMATION
  Report Type: 
  Country: None (occurrence: None)
  Receive Date: 20100305
  Receipt Date: 20100222
  Transmission Date: 20100710
  Serious: Yes (Hospitalization)
  Sender: FDA-Public Use
  Company Number: SG-ELI_LILLY_AND_COMPANY-SG200908003018

PATIENT
  Sex: Male
  Weight: 51.6 kg

DRUGS (5)
  1. GEMCITABINE HCL [Suspect]
     Indication: PANCREATIC CARCINOMA
     Dosage: 1162.5 MG, DAYS 1,8,15 EVERY MONTH
     Route: 042
     Dates: start: 20081017, end: 20090217
  2. PLACEBO [Suspect]
     Indication: PANCREATIC CARCINOMA
     Dosage: UNK, UNK
     Route: 048
     Dates: start: 20081017, end: 20090202
  3. PROCODIN [Concomitant]
     Dosage: UNK, UNK
     Route: 048
     Dates: start: 20090303, end: 20090317
  4. CIPROFLOXACIN HYDROCHLORIDE [Concomitant]
     Route: 048
     Dates: start: 20090303, end: 20090312
  5. FERROUS FUMARATE [Concomitant]
     Dosage: UNK, UNK
     Route: 048
     Dates: start: 20090303, end: 20090312

REACTIONS (2)
  - BILIARY SEPSIS [None]
  - CHOLANGITIS [None]
